FAERS Safety Report 5114750-5 (Version None)
Quarter: 2006Q3

REPORT INFORMATION
  Report Type: 
  Country: None (occurrence: None)
  Receive Date: 20060922
  Receipt Date: 20060911
  Transmission Date: 20061208
  Serious: Yes (Other)
  Sender: FDA-Public Use
  Company Number: 2006112532

PATIENT
  Sex: Male

DRUGS (1)
  1. SOLU-MEDROL [Suspect]
     Dosage: 300 MG/KG
     Dates: start: 20060823

REACTIONS (5)
  - CARDIAC ARREST [None]
  - HAEMODIALYSIS [None]
  - HYPERGLYCAEMIA [None]
  - INCORRECT DOSE ADMINISTERED [None]
  - RENAL FAILURE ACUTE [None]
